FAERS Safety Report 4277446-8 (Version None)
Quarter: 2004Q1

REPORT INFORMATION
  Report Type: 
  Country: None (occurrence: None)
  Receive Date: 20040122
  Receipt Date: 20020208
  Transmission Date: 20041129
  Serious: Yes (Other)
  Sender: FDA-Public Use
  Company Number: FR-ROCHE-306718

PATIENT
  Age: 47 Year
  Sex: Male

DRUGS (12)
  1. ENFUVIRTIDE [Suspect]
     Indication: HIV INFECTION
     Route: 058
     Dates: start: 20010328, end: 20020130
  2. LOPINAVIR [Suspect]
     Indication: DRUG USE FOR UNKNOWN INDICATION
     Route: 065
     Dates: start: 20020107, end: 20020121
  3. LOPINAVIR [Suspect]
     Route: 065
     Dates: start: 20020121
  4. RITONAVIR [Suspect]
     Indication: DRUG USE FOR UNKNOWN INDICATION
     Route: 065
     Dates: start: 20020107, end: 20020121
  5. RITONAVIR [Suspect]
     Route: 065
     Dates: start: 20020121
  6. TENOFOVIR [Suspect]
     Indication: DRUG USE FOR UNKNOWN INDICATION
     Route: 065
     Dates: start: 20020107, end: 20020121
  7. VIDEX [Suspect]
     Indication: DRUG USE FOR UNKNOWN INDICATION
     Route: 065
     Dates: start: 20010328
  8. ZERIT [Suspect]
     Indication: DRUG USE FOR UNKNOWN INDICATION
     Route: 065
     Dates: start: 20010328
  9. GEMFIBROZIL [Concomitant]
  10. FOLIC ACID [Concomitant]
  11. PYRIDOXINE [Concomitant]
  12. ASPIRIN [Concomitant]

REACTIONS (4)
  - BLOOD GLUCOSE INCREASED [None]
  - BLOOD PHOSPHORUS DECREASED [None]
  - EPSTEIN-BARR VIRUS INFECTION [None]
  - HEPATIC STEATOSIS [None]
